FAERS Safety Report 22113287 (Version 2)
Quarter: 2023Q2

REPORT INFORMATION
  Report Type: Spontaneous
  Country: JP (occurrence: JP)
  Receive Date: 20230320
  Receipt Date: 20230426
  Transmission Date: 20230722
  Serious: Yes (Death, Other)
  Sender: FDA-Public Use
  Company Number: JP-CHUGAI-2023008944

PATIENT
  Age: 66 Year
  Sex: Female
  Weight: 51.16 kg

DRUGS (1)
  1. AVASTIN [Suspect]
     Active Substance: BEVACIZUMAB
     Indication: Ovarian cancer
     Route: 041
     Dates: start: 20210618, end: 20221226

REACTIONS (3)
  - Cerebral haemorrhage [Fatal]
  - Metastases to central nervous system [Unknown]
  - Disease progression [Fatal]

NARRATIVE: CASE EVENT DATE: 20230301
